FAERS Safety Report 4287257-5 (Version None)
Quarter: 2004Q1

REPORT INFORMATION
  Report Type: 
  Country: None (occurrence: None)
  Receive Date: 20040126
  Receipt Date: 20030902
  Transmission Date: 20041129
  Serious: No
  Sender: FDA-Public Use
  Company Number: USA030639509

PATIENT
  Age: 77 Year
  Sex: Female

DRUGS (12)
  1. FORTEO [Suspect]
     Indication: OSTEOPOROSIS
     Dosage: 20 UG/DAY
  2. EVISTA [Suspect]
     Indication: OSTEOPOROSIS
     Dosage: 60 MG/DAY
  3. MULTIVITAMIN [Concomitant]
  4. LIPITOR [Concomitant]
  5. TRIAMTERENE AND HYDROCHLOROTHIAZIDE [Concomitant]
  6. NORVASC [Concomitant]
  7. ULTRACET [Concomitant]
  8. CALTRATE 600 PLUS [Concomitant]
  9. VITAMIN E [Concomitant]
  10. VITAMIN C [Concomitant]
  11. PREDNISONE [Concomitant]
  12. PROCRIT (ERYTHROPOIETIN) [Concomitant]

REACTIONS (4)
  - EYE DISORDER [None]
  - INJECTION SITE HAEMORRHAGE [None]
  - MUSCLE CRAMP [None]
  - VISION BLURRED [None]
